FAERS Safety Report 8607100-0 (Version None)
Quarter: 2012Q3

REPORT INFORMATION
  Report Type: 
  Country: None (occurrence: None)
  Receive Date: 20120821
  Receipt Date: 20120809
  Transmission Date: 20120928
  Serious: Yes (Hospitalization)
  Sender: FDA-Public Use
  Company Number: US-BIOGENIDEC-2012BI026525

PATIENT
  Age: 37 Year
  Sex: Male

DRUGS (16)
  1. METFORMIN HCL [Concomitant]
  2. ASCORBIC ACID [Concomitant]
  3. HYDROCHLOROTHIAZIDE [Concomitant]
  4. VICODIN [Concomitant]
  5. TYLENOL [Concomitant]
  6. GABAPENTIN [Concomitant]
  7. BACLOFEN [Concomitant]
  8. TYSABRI [Suspect]
     Indication: MULTIPLE SCLEROSIS
     Route: 042
     Dates: start: 20120312
  9. LISINOPRIL [Concomitant]
  10. AMANTADINE HCL [Concomitant]
  11. AMITRIPTYLINE HCL [Concomitant]
  12. CALCIUM AND VITAMIN D [Concomitant]
  13. KEPPRA [Concomitant]
  14. LANTUS [Concomitant]
  15. LEVOTHYROXINE SODIUM [Concomitant]
  16. LOVAZA [Concomitant]

REACTIONS (5)
  - UHTHOFF'S PHENOMENON [None]
  - URINARY RETENTION [None]
  - URINARY TRACT INFECTION [None]
  - HEMIPARESIS [None]
  - HYPOAESTHESIA [None]
